FAERS Safety Report 8854719 (Version 1)
Quarter: 2012Q4

REPORT INFORMATION
  Report Type: 
  Country: US (occurrence: US)
  Receive Date: 20121023
  Receipt Date: 20121023
  Transmission Date: 20130627
  Serious: Yes (Disabling)
  Sender: FDA-Public Use
  Company Number: US-SANOFI-AVENTIS-2012SA075143

PATIENT
  Sex: Male

DRUGS (1)
  1. LANTUS [Suspect]
     Indication: TYPE II DIABETES MELLITUS
     Route: 058

REACTIONS (2)
  - Cerebrovascular accident [Not Recovered/Not Resolved]
  - Hypertension [Unknown]
